FAERS Safety Report 12615707 (Version 2)
Quarter: 2016Q4

REPORT INFORMATION
  Report Type: Spontaneous
  Country: US (occurrence: US)
  Receive Date: 20160802
  Receipt Date: 20161103
  Transmission Date: 20170207
  Serious: No
  Sender: FDA-Public Use
  Company Number: US-IMPAX LABORATORIES, INC-2016-IPXL-00690

PATIENT
  Age: 76 Year
  Sex: Male
  Weight: 87.5 kg

DRUGS (4)
  1. RYTARY [Suspect]
     Active Substance: CARBIDOPA\LEVODOPA
     Dosage: 48.75/195 MG 3 CAPSULES FOUR TIMES A DAY 6 AM, 11 AM, 4 PM AND 9 PM
     Route: 048
     Dates: start: 201606
  2. PRAVASTATIN. [Concomitant]
     Active Substance: PRAVASTATIN
     Indication: BLOOD CHOLESTEROL
     Dosage: 20 MG, UNK
     Route: 048
  3. RYTARY [Suspect]
     Active Substance: CARBIDOPA\LEVODOPA
     Indication: PARKINSON^S DISEASE
     Dosage: 48.75/195MG 4 CAPSULES 3 TIMES A DAY
     Route: 048
     Dates: start: 20160605, end: 20160622
  4. LOTENSIN HCT [Concomitant]
     Active Substance: BENAZEPRIL HYDROCHLORIDE\HYDROCHLOROTHIAZIDE
     Indication: HYPERTENSION
     Dosage: 20MG/25MG UNK
     Route: 048

REACTIONS (5)
  - Vitamin D decreased [Not Recovered/Not Resolved]
  - Sleep disorder [Recovering/Resolving]
  - Tremor [Recovering/Resolving]
  - Vitamin B12 decreased [Not Recovered/Not Resolved]
  - Drug effect decreased [Not Recovered/Not Resolved]

NARRATIVE: CASE EVENT DATE: 201606
